FAERS Safety Report 8265313-4 (Version None)
Quarter: 2012Q2

REPORT INFORMATION
  Report Type: 
  Country: None (occurrence: None)
  Receive Date: 20120406
  Receipt Date: 20120328
  Transmission Date: 20120825
  Serious: Yes (Hospitalization)
  Sender: FDA-Public Use
  Company Number: AU-ABBOTT-12P-008-0920004-06

PATIENT
  Sex: Female

DRUGS (4)
  1. HUMIRA [Suspect]
     Indication: CROHN'S DISEASE
     Route: 058
     Dates: start: 20090820, end: 20090820
  2. HUMIRA [Suspect]
  3. HUMIRA [Suspect]
     Dates: end: 20091111
  4. HUMIRA [Suspect]
     Dates: start: 20100304, end: 20100415

REACTIONS (1)
  - ILEOSTOMY CLOSURE [None]
